FAERS Safety Report 10052833 (Version 2)
Quarter: 2014Q2

REPORT INFORMATION
  Report Type: Spontaneous
  Country: CZ (occurrence: CZ)
  Receive Date: 20140402
  Receipt Date: 20140402
  Transmission Date: 20141212
  Serious: Yes (Death, Hospitalization)
  Sender: FDA-Public Use
  Company Number: CZ-BAXTER-2014BAX013281

PATIENT
  Sex: Male

DRUGS (3)
  1. DIANEAL PD4 GLUCOSE 2,27% W/V / 22,7 MG/ML [Suspect]
     Indication: RENAL FAILURE
     Route: 033
     Dates: end: 201403
  2. DIANEAL PD4 GLUCOSE 3,86% W/V / 38,6 MG/ML [Suspect]
     Indication: RENAL FAILURE
     Route: 033
     Dates: end: 201403
  3. EXTRANEAL [Suspect]
     Indication: RENAL FAILURE
     Route: 033
     Dates: end: 201403

REACTIONS (3)
  - Myocardial infarction [Fatal]
  - Peritonitis bacterial [Not Recovered/Not Resolved]
  - Fungal peritonitis [Not Recovered/Not Resolved]
